FAERS Safety Report 24657636 (Version 1)
Quarter: 2024Q4

REPORT INFORMATION
  Report Type: Spontaneous
  Country: US (occurrence: US)
  Receive Date: 20241125
  Receipt Date: 20241125
  Transmission Date: 20250115
  Serious: No
  Sender: STRIDES
  Company Number: US-STRIDES ARCOLAB LIMITED-2024SP011305

PATIENT
  Sex: Male

DRUGS (2)
  1. CYCLOSPORINE [Suspect]
     Active Substance: CYCLOSPORINE
     Indication: Angioedema
     Dosage: UNK (CAPSULE)
     Route: 065
  2. CYCLOSPORINE [Suspect]
     Active Substance: CYCLOSPORINE
     Dosage: UNK (CAPSULE, LIQUID FILLED)
     Route: 065

REACTIONS (5)
  - Product physical issue [Unknown]
  - Product leakage [Unknown]
  - Product substitution issue [Unknown]
  - Incorrect dose administered [Unknown]
  - Off label use [Unknown]
